FAERS Safety Report 24594506 (Version 2)
Quarter: 2025Q2

REPORT INFORMATION
  Report Type: Spontaneous
  Country: US (occurrence: US)
  Receive Date: 20241108
  Receipt Date: 20250519
  Transmission Date: 20250717
  Serious: Yes (Hospitalization, Other)
  Sender: NORDIC PHARMA
  Company Number: US-NORIDC PHARMA, INC-2024US004008

PATIENT

DRUGS (3)
  1. SUCCINYLCHOLINE [Suspect]
     Active Substance: SUCCINYLCHOLINE
     Indication: Endotracheal intubation
  2. PROPOFOL [Concomitant]
     Active Substance: PROPOFOL
     Indication: Product used for unknown indication
  3. REMIFENTANIL [Concomitant]
     Active Substance: REMIFENTANIL
     Indication: Product used for unknown indication

REACTIONS (2)
  - Neuromuscular block prolonged [Unknown]
  - Unresponsive to stimuli [Unknown]
